FAERS Safety Report 18909176 (Version 1)
Quarter: 2021Q1

REPORT INFORMATION
  Report Type: Spontaneous
  Country: US (occurrence: US)
  Receive Date: 20210217
  Receipt Date: 20210217
  Transmission Date: 20210420
  Serious: No
  Sender: FDA-Public Use
  Company Number: None

PATIENT
  Age: 63 Year
  Sex: Female
  Weight: 61.23 kg

DRUGS (6)
  1. FISH OIL [Concomitant]
     Active Substance: FISH OIL
  2. ZINC. [Concomitant]
     Active Substance: ZINC
  3. STOOL SOFTENER (DOCUSATE) [Concomitant]
     Active Substance: DOCUSATE
  4. ATENOLOL?GENERIC FOR TENORMIN TABS [Suspect]
     Active Substance: ATENOLOL
     Indication: HYPERTENSION
     Dosage: ?          QUANTITY:50MG AM/ 125MG PM;OTHER FREQUENCY:MORNING + NIGHT;?
     Route: 048
     Dates: start: 20210201
  5. SIMVASTATIN 20MG [Concomitant]
     Active Substance: SIMVASTATIN
  6. VITAMIN D [Concomitant]
     Active Substance: VITAMIN D NOS

REACTIONS (3)
  - Abdominal discomfort [None]
  - Product quality issue [None]
  - Product taste abnormal [None]

NARRATIVE: CASE EVENT DATE: 20210201
